FAERS Safety Report 7755283-7 (Version None)
Quarter: 2011Q3

REPORT INFORMATION
  Report Type: 
  Country: None (occurrence: None)
  Receive Date: 20110916
  Receipt Date: 20110912
  Transmission Date: 20111222
  Serious: Yes (Hospitalization)
  Sender: FDA-Public Use
  Company Number: IT-PFIZER INC-2011217121

PATIENT
  Age: 71 Year
  Sex: Female

DRUGS (9)
  1. TICLOPIDINE HCL [Suspect]
     Indication: PROPHYLAXIS
     Dosage: 250 MG DAILY
     Route: 048
     Dates: start: 20100301, end: 20110405
  2. TRAZODONE HCL [Concomitant]
  3. MADOPAR [Concomitant]
     Indication: PARKINSON'S DISEASE
  4. CORDARONE [Suspect]
     Indication: ATRIAL FIBRILLATION
     Dosage: 200 MG  DAILY
     Route: 048
     Dates: start: 20080101, end: 20110405
  5. CITALOPRAM HYDROBROMIDE [Suspect]
     Indication: DEPRESSION
     Dosage: 20 MG DAILY
     Route: 048
     Dates: start: 20080101, end: 20110405
  6. LASIX [Concomitant]
  7. XANAX [Concomitant]
     Dosage: 20 DROPS PER DAY
  8. BISOPROLOL FUMARATE [Concomitant]
     Indication: HYPERTENSION
     Dosage: 1.25 MG, 1X/DAY
     Route: 048
  9. SIMVASTATIN [Concomitant]

REACTIONS (1)
  - ANAEMIA [None]
